FAERS Safety Report 15066654 (Version 3)
Quarter: 2018Q3

REPORT INFORMATION
  Report Type: Report from Study
  Country: CA (occurrence: CA)
  Receive Date: 20180626
  Receipt Date: 20180702
  Transmission Date: 20181010
  Serious: Yes (Other)
  Sender: FDA-Public Use
  Company Number: CA-UCBSA-2018026572

PATIENT
  Age: 51 Year
  Sex: Female

DRUGS (2)
  1. CERTOLIZUMAB PEGOL [Suspect]
     Active Substance: CERTOLIZUMAB PEGOL
     Indication: PRODUCT USED FOR UNKNOWN INDICATION
     Dosage: 400 MG, EV 2 WEEKS(QOW)
     Route: 058
     Dates: start: 20180531, end: 20180617
  2. CORTISONE [Concomitant]
     Active Substance: CORTISONE\HYDROCORTISONE
     Indication: PRODUCT USED FOR UNKNOWN INDICATION

REACTIONS (7)
  - Blindness [Unknown]
  - Rash [Unknown]
  - Butterfly rash [Unknown]
  - Unevaluable event [Unknown]
  - Aphonia [Unknown]
  - Naevus haemorrhage [Unknown]
  - Swollen tongue [Unknown]

NARRATIVE: CASE EVENT DATE: 2018
